FAERS Safety Report 25779307 (Version 2)
Quarter: 2025Q3

REPORT INFORMATION
  Report Type: Spontaneous
  Country: CH (occurrence: CH)
  Receive Date: 20250909
  Receipt Date: 20250911
  Transmission Date: 20251020
  Serious: No
  Sender: JOHNSON AND JOHNSON
  Company Number: CH-JNJFOC-20250908752

PATIENT

DRUGS (2)
  1. PREZISTA [Suspect]
     Active Substance: DARUNAVIR ETHANOLATE
     Indication: Product use in unapproved indication
     Route: 048
  2. PREZISTA [Suspect]
     Active Substance: DARUNAVIR ETHANOLATE

REACTIONS (1)
  - Device issue [Unknown]
